FAERS Safety Report 8623155-1 (Version None)
Quarter: 2012Q3

REPORT INFORMATION
  Report Type: 
  Country: None (occurrence: None)
  Receive Date: 20120827
  Receipt Date: 20120815
  Transmission Date: 20120928
  Serious: Yes (Hospitalization)
  Sender: FDA-Public Use
  Company Number: US-BAYER-2012-039229

PATIENT
  Age: 40 Year
  Sex: Female
  Weight: 104.31 kg

DRUGS (5)
  1. DROSPIRENONE AND ETHINYL ESTRADIOL [Suspect]
     Indication: CONTRACEPTION
     Dosage: UNK
     Dates: start: 20090507
  2. YAZ [Suspect]
     Indication: CONTRACEPTION
     Dosage: UNK
     Dates: start: 20090507
  3. RISPERDAL CONSTA [Concomitant]
     Indication: BIPOLAR DISORDER
     Dosage: 50 MG, Q2WK
     Dates: start: 20090507
  4. COGENTIN [Concomitant]
     Dosage: UNK
     Dates: start: 20090501
  5. YASMIN [Suspect]
     Indication: CONTRACEPTION
     Dosage: UNK
     Dates: start: 20090507

REACTIONS (4)
  - PULMONARY EMBOLISM [None]
  - PAIN [None]
  - INJURY [None]
  - MYOCARDIAL INFARCTION [None]
